FAERS Safety Report 4717207-6 (Version None)
Quarter: 2005Q3

REPORT INFORMATION
  Report Type: 
  Country: None (occurrence: None)
  Receive Date: 20050715
  Receipt Date: 20050708
  Transmission Date: 20060218
  Serious: Yes (Hospitalization)
  Sender: FDA-Public Use
  Company Number: 2005-03-1576

PATIENT
  Age: 32 Year
  Sex: Female

DRUGS (9)
  1. CLARITIN REDITABS [Suspect]
     Indication: RHINITIS ALLERGIC
     Dosage: 10 MG ORAL
     Route: 048
     Dates: start: 20050312, end: 20050316
  2. FLOMOX (CEFCAPENE PIVOXIL HCL) TABLETS [Concomitant]
     Indication: INFLUENZA
     Dosage: 300 MG ORAL
     Route: 048
     Dates: start: 20050316, end: 20050317
  3. TRANSAMIN CAPSULES [Suspect]
     Indication: INFLUENZA
     Dosage: 1500 MG ORAL
     Route: 048
     Dates: start: 20050316, end: 20050317
  4. TAMIFLU [Suspect]
     Indication: INFLUENZA
     Dosage: 150 MG ORAL
     Route: 048
     Dates: start: 20050316, end: 20050317
  5. ACETAMINOPHEN [Suspect]
     Indication: INFLUENZA
     Dosage: 400 MG ORAL
     Route: 048
     Dates: start: 20050316, end: 20050317
  6. VITAMIN B COMPLEX SOL [Suspect]
     Indication: INFLUENZA
     Dosage: 10 G INTRAVENOUS
     Route: 042
     Dates: start: 20050316, end: 20050316
  7. FOSMICIN INJECTABLES [Suspect]
     Indication: INFLUENZA
     Dosage: 1 G INTRAVENOUS
     Route: 042
     Dates: start: 20050316, end: 20050316
  8. KN SOL. 3B INJECTABLE [Concomitant]
  9. BECLOMETHASONE DIPROPIONATE NASAL SOLUTION NASAL SPRAY [Concomitant]

REACTIONS (18)
  - ARTHRALGIA [None]
  - ASPARTATE AMINOTRANSFERASE INCREASED [None]
  - BLISTER [None]
  - CONJUNCTIVITIS [None]
  - EYE PRURITUS [None]
  - HEPATIC FUNCTION ABNORMAL [None]
  - INFLUENZA [None]
  - KERATITIS [None]
  - LIVER DISORDER [None]
  - MOUTH HAEMORRHAGE [None]
  - NAUSEA [None]
  - OPHTHALMIA NODOSA [None]
  - PNEUMONIA MYCOPLASMAL [None]
  - RASH [None]
  - STEVENS-JOHNSON SYNDROME [None]
  - STOMATITIS [None]
  - THIRST [None]
  - VULVAL DISORDER [None]
